FAERS Safety Report 4978393-6 (Version None)
Quarter: 2006Q2

REPORT INFORMATION
  Report Type: 
  Country: None (occurrence: None)
  Receive Date: 20060417
  Receipt Date: 20060404
  Transmission Date: 20061013
  Serious: Yes (Other)
  Sender: FDA-Public Use
  Company Number: TPG2006A00198

PATIENT
  Sex: 0

DRUGS (2)
  1. ACTOS [Suspect]
     Indication: DIABETES MELLITUS
     Dosage: PER ORAL; IN THE MIDDLE OF FEBRUARY
     Route: 048
  2. ANTIBIOTICS (ANTIBIOTICS) [Concomitant]

REACTIONS (3)
  - HEPATIC FIBROSIS [None]
  - HEPATIC NECROSIS [None]
  - HEPATOCELLULAR DAMAGE [None]
